FAERS Safety Report 6960307-0 (Version None)
Quarter: 2010Q3

REPORT INFORMATION
  Report Type: 
  Country: None (occurrence: None)
  Receive Date: 20100901
  Receipt Date: 20100820
  Transmission Date: 20110219
  Serious: No
  Sender: FDA-Public Use
  Company Number: US-B.I. PHARMACEUTICALS,INC./RIDGEFIELD-2010-BP-09462BP

PATIENT
  Age: 89 Year
  Sex: Female

DRUGS (2)
  1. MIRAPEX [Suspect]
     Indication: RESTLESS LEGS SYNDROME
     Dosage: 0.375 MG
     Route: 048
     Dates: start: 20100801, end: 20100801
  2. REGULAR INSULIN [Concomitant]
     Indication: DIABETES MELLITUS

REACTIONS (2)
  - PAIN [None]
  - SOMNOLENCE [None]
